FAERS Safety Report 8609730 (Version 2)
Quarter: 2012Q4

REPORT INFORMATION
  Report Type: 
  Country: JP (occurrence: JP)
  Receive Date: 20120612
  Receipt Date: 20121113
  Transmission Date: 20130627
  Serious: Yes (Death, Hospitalization)
  Sender: FDA-Public Use
  Company Number: JP-SHIRE-ALL1-2012-02642

PATIENT
  Age: 76 Year
  Sex: Female

DRUGS (16)
  1. 405 (LANTHANUM CARBONATE) [Suspect]
     Indication: HYPERPHOSPHATAEMIA
     Dosage: 750 mg, Other (Immediately after meals)
     Route: 048
     Dates: start: 20090413, end: 20090816
  2. 405 (LANTHANUM CARBONATE) [Suspect]
     Dosage: 1500 mg, 1x/day:qd
     Route: 048
     Dates: start: 20090817, end: 20111231
  3. CALTAN [Concomitant]
     Indication: HYPERPHOSPHATAEMIA
     Dosage: 1500 mg, Unknown
     Route: 048
     Dates: start: 20040710
  4. AMLODIN [Concomitant]
     Indication: HYPERTENSION
     Dosage: 5 mg, Unknown
     Route: 048
  5. BASEN [Concomitant]
     Indication: DIABETES MELLITUS
     Dosage: 0.9 mg, Unknown
     Route: 048
  6. TAKEPRON [Concomitant]
     Indication: GASTRITIS
     Dosage: 15 mg, Unknown
     Route: 048
  7. ALOSENN                            /00476901/ [Concomitant]
     Indication: CONSTIPATION
     Dosage: 1 g, Unknown
     Route: 048
  8. SENNOSIDE                          /00571901/ [Concomitant]
     Indication: CONSTIPATION
     Dosage: 24 mg, Unknown
     Route: 048
  9. FUROSEMIDE [Concomitant]
     Indication: DIURETIC THERAPY
     Dosage: 240 mg, Unknown
     Route: 048
  10. PROMAC                             /00024401/ [Concomitant]
     Indication: GASTRITIS
     Dosage: 300 mg, Unknown
     Route: 048
  11. DOPS [Concomitant]
     Indication: PROPHYLAXIS
     Dosage: 300 mg, 1x/week (during dialysis)
     Route: 048
  12. RISUMIC [Concomitant]
     Indication: PROPHYLAXIS
     Dosage: 30 mg, 1x/week (during dialysis)
     Route: 048
  13. EPOGEN [Concomitant]
     Indication: NEPHROGENIC ANAEMIA
     Dosage: 3000 IU, 1x/week (after dialysis)
     Route: 042
  14. OXAROL [Concomitant]
     Indication: PRODUCT USED FOR UNKNOWN INDICATION
     Dosage: 7.5 mg, 1x/week
     Route: 042
     Dates: start: 20100830
  15. CINAL [Concomitant]
     Indication: HAEMORRHAGE SUBCUTANEOUS
     Dosage: 2 g, Unknown
     Route: 048
  16. ANALGESICS [Concomitant]
     Indication: SPINAL COMPRESSION FRACTURE
     Dosage: UNK, Unknown
     Route: 048
     Dates: start: 20120102

REACTIONS (3)
  - Shock haemorrhagic [Fatal]
  - Peritonitis sclerosing [Fatal]
  - Cellulitis [Unknown]
